FAERS Safety Report 23903670 (Version 2)
Quarter: 2024Q2

REPORT INFORMATION
  Report Type: Other
  Country: US (occurrence: None)
  Receive Date: 20240527
  Receipt Date: 20240529
  Transmission Date: 20240716
  Serious: Yes (Other)
  Sender: FDA-Public Use
  Company Number: US-ROCHE-3568020

PATIENT

DRUGS (3)
  1. RITUXIMAB [Suspect]
     Active Substance: RITUXIMAB
     Indication: B-cell lymphoma refractory
     Dosage: WEEKLY DURING CYCLE 1, AND ON D1 DURING CYCLES 2-6
     Route: 042
  2. EVORPACEPT [Suspect]
     Active Substance: EVORPACEPT
     Indication: B-cell lymphoma refractory
     Dosage: TWO DOSE LEVELS (DL): 30 MG/KG ON DAY (D)1 AND D15 (DL1), OR 60 MG/KG ON DAY 1 (DL2)
     Route: 042
  3. LENALIDOMIDE [Suspect]
     Active Substance: LENALIDOMIDE
     Indication: B-cell lymphoma refractory
     Dosage: ON D1-21 DURING CYCLES 1-6
     Route: 048

REACTIONS (6)
  - Neutropenia [Unknown]
  - Infection [Unknown]
  - Alanine aminotransferase increased [Unknown]
  - Aspartate aminotransferase increased [Unknown]
  - Rash [Unknown]
  - Anaemia [Unknown]
